FAERS Safety Report 12229695 (Version 4)
Quarter: 2016Q3

REPORT INFORMATION
  Report Type: Spontaneous
  Country: US (occurrence: US)
  Receive Date: 20160401
  Receipt Date: 20160829
  Transmission Date: 20161109
  Serious: Yes (Hospitalization)
  Sender: FDA-Public Use
  Company Number: US-JNJFOC-20160309442

PATIENT
  Age: 75 Year
  Sex: Male

DRUGS (5)
  1. ECOTRIN [Suspect]
     Active Substance: ASPIRIN
     Indication: PRODUCT USED FOR UNKNOWN INDICATION
     Route: 048
  2. XARELTO [Suspect]
     Active Substance: RIVAROXABAN
     Indication: CEREBROVASCULAR ACCIDENT PROPHYLAXIS
     Route: 048
     Dates: start: 20150302, end: 20150307
  3. TYLENOL [Concomitant]
     Active Substance: ACETAMINOPHEN
     Indication: PRODUCT USED FOR UNKNOWN INDICATION
     Dosage: PRN (WHENEVER NECESSARY)
     Route: 048
  4. XARELTO [Suspect]
     Active Substance: RIVAROXABAN
     Indication: ATRIAL FIBRILLATION
     Route: 048
     Dates: start: 20150302, end: 20150307
  5. XARELTO [Suspect]
     Active Substance: RIVAROXABAN
     Indication: THROMBOSIS PROPHYLAXIS
     Route: 048
     Dates: start: 20150302, end: 20150307

REACTIONS (7)
  - Gastrointestinal haemorrhage [Unknown]
  - Skin ulcer [Unknown]
  - Cellulitis [Unknown]
  - Acute kidney injury [Unknown]
  - Hypovolaemia [Unknown]
  - Haemarthrosis [Unknown]
  - Multiple injuries [Unknown]

NARRATIVE: CASE EVENT DATE: 2015
